FAERS Safety Report 7314692-0 (Version None)
Quarter: 2011Q1

REPORT INFORMATION
  Report Type: 
  Country: None (occurrence: None)
  Receive Date: 20110225
  Receipt Date: 20101129
  Transmission Date: 20110831
  Serious: No
  Sender: FDA-Public Use
  Company Number: US-MYLANLABS-2010S1020749

PATIENT
  Age: 15 Year
  Sex: Male
  Weight: 65 kg

DRUGS (3)
  1. AMNESTEEM [Suspect]
     Indication: ACNE
     Route: 048
     Dates: start: 20100901, end: 20101010
  2. TRETINOIN [Concomitant]
     Route: 061
  3. DUAC [Concomitant]

REACTIONS (2)
  - LYMPHADENOPATHY [None]
  - OROPHARYNGEAL PAIN [None]
